FAERS Safety Report 4932422-4 (Version None)
Quarter: 2006Q1

REPORT INFORMATION
  Report Type: 
  Country: None (occurrence: None)
  Receive Date: 20060301
  Receipt Date: 20060215
  Transmission Date: 20060701
  Serious: Yes (Death)
  Sender: FDA-Public Use
  Company Number: RENA-11654

PATIENT
  Age: 87 Year
  Sex: Female

DRUGS (7)
  1. PHOSBLOCK 250 MG TABLETS [Suspect]
     Indication: HYPERPHOSPHATAEMIA
     Dosage: 0.25 G QD PO
     Route: 048
     Dates: start: 20050601, end: 20050730
  2. PRECIPITATED CALCIUM CARBONATE [Concomitant]
  3. SENNOSIDE [Concomitant]
  4. NICORANDIL [Concomitant]
  5. BUFFERIN [Concomitant]
  6. ISOSORBIDE DINITRATE [Concomitant]
  7. AMEZINIUM METHYLSULFATE [Concomitant]

REACTIONS (2)
  - ACUTE RESPIRATORY FAILURE [None]
  - CONDITION AGGRAVATED [None]
